FAERS Safety Report 8770797 (Version 1)
Quarter: 2012Q4

REPORT INFORMATION
  Report Type: Report from Study
  Country: CO (occurrence: CO)
  Receive Date: 20120910
  Receipt Date: 20120910
  Transmission Date: 20130627
  Serious: Yes (Hospitalization, Other)
  Sender: FDA-Public Use
  Company Number: CO-ABBOTT-12P-036-0976150-00

PATIENT
  Age: 63 Year
  Sex: Male

DRUGS (1)
  1. HUMIRA [Suspect]
     Indication: PSORIASIS
     Route: 058
     Dates: start: 20120302, end: 20120726

REACTIONS (4)
  - Ascites [Unknown]
  - Hepatic cancer [Not Recovered/Not Resolved]
  - Pleural effusion [Unknown]
  - General physical health deterioration [Unknown]
